FAERS Safety Report 5105770-5 (Version None)
Quarter: 2006Q3

REPORT INFORMATION
  Report Type: 
  Country: None (occurrence: None)
  Receive Date: 20060915
  Receipt Date: 20051017
  Transmission Date: 20061208
  Serious: Yes (Death, Hospitalization)
  Sender: FDA-Public Use
  Company Number: US-ROCHE-421597

PATIENT
  Age: 54 Year
  Sex: Female

DRUGS (3)
  1. CAPECITABINE [Suspect]
     Indication: BREAST CANCER
     Dosage: LAST DOSE PRIOR TO SAE WAS 27 JUNE 2005 (COURSE 3)
     Route: 048
     Dates: start: 20050502
  2. IXABEPILONE [Suspect]
     Indication: BREAST CANCER
     Dosage: DATE OF LAST DOSE PRIOR TO SAE WAS 13 JUNE 2005 (COURSE 3)
     Route: 042
     Dates: start: 20050502
  3. GLUCOPHAGE [Concomitant]
     Dates: start: 20040515

REACTIONS (5)
  - BREAST CANCER METASTATIC [None]
  - MALIGNANT NEOPLASM PROGRESSION [None]
  - NEOPLASM MALIGNANT [None]
  - PLEURAL EFFUSION [None]
  - PNEUMONITIS [None]
